FAERS Safety Report 8532020-X (Version None)
Quarter: 2012Q3

REPORT INFORMATION
  Report Type: 
  Country: None (occurrence: None)
  Receive Date: 20120723
  Receipt Date: 20120712
  Transmission Date: 20120928
  Serious: Yes (Hospitalization)
  Sender: FDA-Public Use
  Company Number: US-JNJFOC-20120708334

PATIENT

DRUGS (3)
  1. ANTI-DEPRESSANT MEDICATION [Concomitant]
     Indication: DEPRESSION
     Route: 065
  2. PALIPERIDONE PALMITATE [Suspect]
     Route: 030
  3. PALIPERIDONE PALMITATE [Suspect]
     Indication: SCHIZOPHRENIA
     Route: 030

REACTIONS (1)
  - DEPRESSION [None]
